FAERS Safety Report 13177425 (Version 1)
Quarter: 2017Q1

REPORT INFORMATION
  Report Type: Report from Study
  Country: US (occurrence: US)
  Receive Date: 20170201
  Receipt Date: 20170201
  Transmission Date: 20170428
  Serious: No
  Sender: FDA-Public Use
  Company Number: US-EXELIXIS-CABO-16006153

PATIENT
  Sex: Male

DRUGS (3)
  1. MIRALAX [Concomitant]
     Active Substance: POLYETHYLENE GLYCOL 3350
  2. METAMUCIL [Concomitant]
     Active Substance: PLANTAGO SEED
  3. COMETRIQ [Suspect]
     Active Substance: CABOZANTINIB S-MALATE
     Indication: RENAL CANCER
     Dosage: 60 MG, QD
     Route: 048
     Dates: start: 20160211

REACTIONS (14)
  - Diarrhoea [Unknown]
  - Tongue ulceration [Unknown]
  - Malaise [Unknown]
  - Palmar-plantar erythrodysaesthesia syndrome [Not Recovered/Not Resolved]
  - Ulcer haemorrhage [Unknown]
  - Skin fissures [Unknown]
  - Mucosal inflammation [Unknown]
  - Pain [Unknown]
  - Stomatitis [Unknown]
  - Nausea [Unknown]
  - Oral pain [Unknown]
  - Weight decreased [Unknown]
  - Fatigue [Unknown]
  - Off label use [Unknown]
